FAERS Safety Report 8500874-9 (Version None)
Quarter: 2012Q3

REPORT INFORMATION
  Report Type: 
  Country: None (occurrence: None)
  Receive Date: 20120710
  Receipt Date: 20120629
  Transmission Date: 20120928
  Serious: Yes (Hospitalization)
  Sender: FDA-Public Use
  Company Number: AT-ROCHE-1085913

PATIENT
  Age: 69 Year
  Sex: Male
  Weight: 67 kg

DRUGS (1)
  1. XELODA [Suspect]
     Indication: RECTAL NEOPLASM
     Dates: start: 20120531, end: 20120614

REACTIONS (2)
  - C-REACTIVE PROTEIN INCREASED [None]
  - DIARRHOEA [None]
